FAERS Safety Report 21766547 (Version 1)
Quarter: 2022Q4

REPORT INFORMATION
  Report Type: Spontaneous
  Country: US (occurrence: None)
  Receive Date: 20221222
  Receipt Date: 20221222
  Transmission Date: 20230112
  Serious: No
  Sender: FDA-Public Use
  Company Number: 2022A396112

PATIENT
  Sex: Female

DRUGS (2)
  1. SYMBICORT [Suspect]
     Active Substance: BUDESONIDE\FORMOTEROL FUMARATE DIHYDRATE
     Dosage: 160/4.5 MCG, DOSE AND FREQUENCY UNKNOWN UNKNOWN
     Route: 055
  2. TEZSPIRE [Suspect]
     Active Substance: TEZEPELUMAB-EKKO
     Dosage: DOSE AND FREQUENCY UNKNOWN
     Route: 065

REACTIONS (4)
  - Malaise [Unknown]
  - Asthma [Unknown]
  - General physical health deterioration [Unknown]
  - Drug dose omission by device [Unknown]
